FAERS Safety Report 6720482-X (Version None)
Quarter: 2010Q2

REPORT INFORMATION
  Report Type: 
  Country: None (occurrence: None)
  Receive Date: 20100506
  Receipt Date: 20100422
  Transmission Date: 20101027
  Serious: Yes (Other)
  Sender: FDA-Public Use
  Company Number: 229-20484-09121754

PATIENT
  Sex: Male
  Weight: 2.74 kg

DRUGS (3)
  1. INNOHEP [Suspect]
     Indication: DRUG EXPOSURE DURING PREGNANCY
     Dosage: TRANSPLACENTAL
     Route: 064
     Dates: start: 20061102, end: 20070501
  2. DEXAMETHASONE [Concomitant]
  3. CLARITHROMYCIN [Concomitant]

REACTIONS (2)
  - MATERNAL DRUGS AFFECTING FOETUS [None]
  - PREMATURE BABY [None]
